FAERS Safety Report 16432860 (Version 6)
Quarter: 2024Q1

REPORT INFORMATION
  Report Type: Spontaneous
  Country: US (occurrence: US)
  Receive Date: 20190614
  Receipt Date: 20240215
  Transmission Date: 20240410
  Serious: Yes (Other)
  Sender: FDA-Public Use
  Company Number: US-JNJFOC-20190612271

PATIENT
  Age: 46 Year
  Sex: Female
  Weight: 56.75 kg

DRUGS (14)
  1. ELMIRON [Suspect]
     Active Substance: PENTOSAN POLYSULFATE SODIUM
     Indication: Cystitis interstitial
     Dosage: STARTED WITH 2 CAPSULES 2 X DAY THEN IN LATER YEARS TOOK 1 CAPSULE IN THE AM
     Route: 048
     Dates: start: 20030828, end: 201810
  2. ELMIRON [Suspect]
     Active Substance: PENTOSAN POLYSULFATE SODIUM
     Route: 048
     Dates: start: 2005
  3. ELMIRON [Suspect]
     Active Substance: PENTOSAN POLYSULFATE SODIUM
     Dosage: ONCE OR TWICE A DAY TIMES A DAY
     Route: 048
     Dates: end: 2018
  4. ELMIRON [Suspect]
     Active Substance: PENTOSAN POLYSULFATE SODIUM
     Route: 048
     Dates: end: 20181209
  5. BALSALAZIDE DISODIUM [Concomitant]
     Active Substance: BALSALAZIDE DISODIUM
     Indication: Gastrointestinal disorder
     Dates: start: 20180316, end: 20191117
  6. PANTOPRAZOLE [Concomitant]
     Active Substance: PANTOPRAZOLE
     Indication: Gastrooesophageal reflux disease
     Dates: start: 20180316, end: 20191022
  7. LEVOTHYROXINE [Concomitant]
     Active Substance: LEVOTHYROXINE\LEVOTHYROXINE SODIUM
     Indication: Hypothyroidism
     Dates: start: 20180320, end: 20191209
  8. FLUTICASONE [Concomitant]
     Active Substance: FLUTICASONE
     Indication: Multiple allergies
     Dates: start: 20180330, end: 20181209
  9. LEVOXYL [Concomitant]
     Active Substance: LEVOTHYROXINE SODIUM
     Indication: Hypothyroidism
     Dates: start: 20180722, end: 20181209
  10. ANUSOL [ZINC SULFATE] [Concomitant]
     Indication: Haemorrhoids
     Dates: start: 20181023, end: 20181023
  11. PROCTOSOL [Concomitant]
     Indication: Haemorrhoids
     Dates: start: 20181023, end: 20191022
  12. INTRAROSA [Concomitant]
     Active Substance: PRASTERONE
     Indication: Dyspareunia
     Dates: start: 20180824, end: 20191228
  13. FLUCONAZOLE [Concomitant]
     Active Substance: FLUCONAZOLE
     Indication: Fungal infection
     Dates: start: 20181218, end: 20191213
  14. PREMARIN [Concomitant]
     Active Substance: ESTROGENS, CONJUGATED
     Indication: Menopause
     Dates: start: 20180913, end: 20191226

REACTIONS (3)
  - Dry age-related macular degeneration [Not Recovered/Not Resolved]
  - Retinal depigmentation [Unknown]
  - Off label use [Unknown]

NARRATIVE: CASE EVENT DATE: 20030828
